FAERS Safety Report 8518237-9 (Version None)
Quarter: 2012Q3

REPORT INFORMATION
  Report Type: 
  Country: None (occurrence: None)
  Receive Date: 20120718
  Receipt Date: 20120120
  Transmission Date: 20120928
  Serious: No
  Sender: FDA-Public Use
  Company Number: US-BRISTOL-MYERS SQUIBB COMPANY-16265175

PATIENT
  Age: 81 Year
  Sex: Male

DRUGS (2)
  1. COUMADIN [Suspect]
     Indication: ATRIAL FIBRILLATION
     Dosage: INTER DATE: 26NOV11-28NOV11. REDUCED TO 2.5MG.INTERR NOV 23-28 (EARLY DEC11)
     Route: 048
     Dates: start: 20090301
  2. ACETAMINOPHEN [Suspect]

REACTIONS (1)
  - HAEMOPTYSIS [None]
